FAERS Safety Report 9631587 (Version 1)
Quarter: 2013Q4

REPORT INFORMATION
  Report Type: Spontaneous
  Country: ES (occurrence: None)
  Receive Date: 20131001
  Receipt Date: 20131001
  Transmission Date: 20140711
  Serious: Yes (Other)
  Sender: FDA-Public Use
  Company Number: GAM-257-13-ES

PATIENT
  Age: 34 Year
  Sex: Male

DRUGS (2)
  1. OCTAGAMOCTA [Suspect]
     Indication: IMMUNODEFICIENCY COMMON VARIABLE
     Route: 042
     Dates: start: 20130609, end: 20130609
  2. FLEBOGAMMA [Suspect]
     Indication: IMMUNODEFICIENCY COMMON VARIABLE
     Route: 042
     Dates: start: 20130609, end: 20130609

REACTIONS (3)
  - Serum sickness [None]
  - Arthralgia [None]
  - Pyrexia [None]
